FAERS Safety Report 23059146 (Version 1)
Quarter: 2023Q4

REPORT INFORMATION
  Report Type: Spontaneous
  Country: US (occurrence: US)
  Receive Date: 20231012
  Receipt Date: 20231012
  Transmission Date: 20240110
  Serious: No
  Sender: FDA-Public Use
  Company Number: US-SANOFI-01795147

PATIENT
  Age: 74 Year
  Sex: Female

DRUGS (2)
  1. MULTAQ [Suspect]
     Active Substance: DRONEDARONE
     Indication: Atrial fibrillation
     Dosage: 200 MG, BID
  2. MULTAQ [Suspect]
     Active Substance: DRONEDARONE
     Dosage: 400 MG, BID

REACTIONS (1)
  - Off label use [Unknown]
